FAERS Safety Report 5131824-3 (Version None)
Quarter: 2006Q4

REPORT INFORMATION
  Report Type: 
  Country: None (occurrence: None)
  Receive Date: 20061016
  Receipt Date: 20061003
  Transmission Date: 20070319
  Serious: Yes (Death, Hospitalization, Disabling, Other)
  Sender: FDA-Public Use
  Company Number: 2005161234

PATIENT
  Sex: Female

DRUGS (3)
  1. CELEBREX [Suspect]
     Indication: JUVENILE ARTHRITIS
     Dosage: 400 MG (200 MG, 2 IN 1 D); ORAL
     Route: 048
     Dates: start: 19960101, end: 20060101
  2. NIMESULIDE (NIMESULIDE) [Suspect]
  3. PHENYLEPHRINE (PHENYLEPHRINE) [Suspect]

REACTIONS (5)
  - ABASIA [None]
  - CONDITION AGGRAVATED [None]
  - INTENTIONAL DRUG MISUSE [None]
  - PAIN [None]
  - THERAPY NON-RESPONDER [None]
